FAERS Safety Report 16476134 (Version 2)
Quarter: 2019Q2

REPORT INFORMATION
  Report Type: Report from Study
  Country: None (occurrence: US)
  Receive Date: 20190625
  Receipt Date: 20190627
  Transmission Date: 20190711
  Serious: Yes (Hospitalization)
  Sender: FDA-Public Use
  Company Number: US-ABBVIE-19P-163-2831163-00

PATIENT
  Age: 27 Year
  Sex: Male
  Weight: 90.8 kg

DRUGS (1)
  1. SKYRIZI [Suspect]
     Active Substance: RISANKIZUMAB-RZAA
     Indication: PSORIASIS
     Route: 058
     Dates: start: 20190604

REACTIONS (1)
  - Alcoholic pancreatitis [Recovering/Resolving]

NARRATIVE: CASE EVENT DATE: 20190619
